FAERS Safety Report 12119055 (Version 1)
Quarter: 2016Q1

REPORT INFORMATION
  Report Type: Spontaneous
  Country: US (occurrence: None)
  Receive Date: 20160225
  Receipt Date: 20160225
  Transmission Date: 20160526
  Serious: No
  Sender: FDA-Public Use
  Company Number: None

PATIENT
  Age: 42 Year
  Sex: Male

DRUGS (1)
  1. ENBREL [Suspect]
     Active Substance: ETANERCEPT
     Indication: ANKYLOSING SPONDYLITIS
     Dosage: 1 ML (50 MG) EVERY 7 DAYS, UNDER THE SKIN
     Dates: start: 20151230, end: 20160224

REACTIONS (1)
  - Injection site reaction [None]

NARRATIVE: CASE EVENT DATE: 20151230
